FAERS Safety Report 11269652 (Version 1)
Quarter: 2015Q3

REPORT INFORMATION
  Report Type: Spontaneous
  Country: PT (occurrence: PT)
  Receive Date: 20150714
  Receipt Date: 20150714
  Transmission Date: 20151125
  Serious: Yes (Other)
  Sender: FDA-Public Use
  Company Number: PT-ACTAVIS-2015-14348

PATIENT
  Age: 51 Year
  Sex: Male

DRUGS (2)
  1. CETIRIZINA ACTAVIS [Suspect]
     Active Substance: CETIRIZINE HYDROCHLORIDE
     Indication: URTICARIA
     Dosage: 10 MG, DAILY
     Route: 048
     Dates: start: 201304
  2. DEFLAZACORTE [Suspect]
     Active Substance: DEFLAZACORT
     Indication: URTICARIA
     Dosage: 30 MG, DAILY
     Route: 048
     Dates: start: 201304

REACTIONS (1)
  - Urticaria [Recovered/Resolved]

NARRATIVE: CASE EVENT DATE: 201304
